FAERS Safety Report 14564068 (Version 1)
Quarter: 2018Q1

REPORT INFORMATION
  Report Type: Spontaneous
  Country: CA (occurrence: CA)
  Receive Date: 20180222
  Receipt Date: 20180222
  Transmission Date: 20180509
  Serious: Yes (Other)
  Sender: FDA-Public Use
  Company Number: CA-OTSUKA-2018_003957

PATIENT
  Age: 55 Year
  Sex: Female

DRUGS (12)
  1. FLUDROCORTISONE ACETATE. [Concomitant]
     Active Substance: FLUDROCORTISONE ACETATE
     Indication: ADDISON^S DISEASE
     Dosage: 0.1 MG, QD (1 EVERY 1 DAY(S))
     Route: 048
  2. ABILIFY [Interacting]
     Active Substance: ARIPIPRAZOLE
     Dosage: 7 MG, UNK
     Route: 048
  3. HYDROCORTISONE. [Interacting]
     Active Substance: HYDROCORTISONE
     Dosage: 10 MG, TID (3 EVERY 1 DAY(S))
     Route: 048
  4. HYDROCORTISONE. [Interacting]
     Active Substance: HYDROCORTISONE
     Dosage: 10 MG, UNK
     Route: 048
  5. SYNTHROID [Interacting]
     Active Substance: LEVOTHYROXINE SODIUM
     Indication: HYPOTHYROIDISM
     Dosage: 75 MG, QD (1 EVERY 1 DAY(S))
     Route: 048
  6. ABILIFY [Interacting]
     Active Substance: ARIPIPRAZOLE
     Dosage: 7 MG, UNK
     Route: 048
  7. HYDROCORTISONE. [Interacting]
     Active Substance: HYDROCORTISONE
     Indication: PRODUCT USED FOR UNKNOWN INDICATION
     Dosage: 10 MG, QID (4 EVERY 1 DAY(S))
     Route: 048
  8. HYDROCORTISONE. [Interacting]
     Active Substance: HYDROCORTISONE
     Dosage: 10 MG, BID (2 EVERY 1 DAY(S))
     Route: 048
  9. HYDROCORTISONE. [Interacting]
     Active Substance: HYDROCORTISONE
     Dosage: 10 MG, QID (4 EVERY 1 DAY(S))
     Route: 048
  10. ABILIFY [Suspect]
     Active Substance: ARIPIPRAZOLE
     Indication: DELUSIONAL DISORDER, UNSPECIFIED TYPE
     Dosage: 5 MG, UNK
     Route: 048
  11. ABILIFY [Interacting]
     Active Substance: ARIPIPRAZOLE
     Indication: PRODUCT USED FOR UNKNOWN INDICATION
     Dosage: 7 MG, QD (1 EVERY 1 DAY (S))
     Route: 048
  12. ABILIFY [Interacting]
     Active Substance: ARIPIPRAZOLE
     Dosage: 10 MG, UNK
     Route: 048

REACTIONS (3)
  - Addison^s disease [Unknown]
  - Product use in unapproved indication [Unknown]
  - Drug interaction [Unknown]
